FAERS Safety Report 6441746-3 (Version None)
Quarter: 2009Q4

REPORT INFORMATION
  Report Type: 
  Country: None (occurrence: None)
  Receive Date: 20091116
  Receipt Date: 20091105
  Transmission Date: 20100525
  Serious: Yes (Hospitalization)
  Sender: FDA-Public Use
  Company Number: FR-PFIZER INC-2009293427

PATIENT
  Age: 81 Year
  Sex: Male

DRUGS (5)
  1. ALDACTONE [Suspect]
     Indication: CARDIAC FAILURE
     Dosage: 25 MG, 1X/DAY
     Route: 048
     Dates: end: 20090110
  2. LASILIX [Concomitant]
     Dosage: 40 MG, 1X/DAY
     Route: 048
  3. PREVISCAN [Concomitant]
     Indication: ARRHYTHMIA
     Dosage: 0.25 DF, 1X/DAY
     Route: 048
     Dates: start: 20081001, end: 20090110
  4. CORDARONE [Concomitant]
     Dosage: 5 DF, WEEKLY
     Route: 048
  5. NEXIUM [Concomitant]
     Dosage: 40 MG, 1X/DAY
     Route: 048

REACTIONS (3)
  - GENERAL PHYSICAL HEALTH DETERIORATION [None]
  - HYPOTENSION [None]
  - MALAISE [None]
